FAERS Safety Report 10909050 (Version 1)
Quarter: 2015Q1

REPORT INFORMATION
  Report Type: Spontaneous
  Country: US (occurrence: US)
  Receive Date: 20150312
  Receipt Date: 20150312
  Transmission Date: 20150721
  Serious: No
  Sender: FDA-Public Use
  Company Number: US-SA-2014SA030962

PATIENT
  Age: 23 Year
  Sex: Female

DRUGS (1)
  1. NASACORT ALLERGY 24HR [Suspect]
     Active Substance: TRIAMCINOLONE ACETONIDE
     Dosage: THE FIRST DAY WITH TWO SPRAY PER NOSTRIL DOSE AND CONTINUED DAILY WITH ONE SPRAY PER NOSTRIL
     Route: 065

REACTIONS (2)
  - Drug administration error [Unknown]
  - Burning sensation [Unknown]
